FAERS Safety Report 13095950 (Version 1)
Quarter: 2017Q1

REPORT INFORMATION
  Report Type: Spontaneous
  Country: BR (occurrence: BR)
  Receive Date: 20170109
  Receipt Date: 20170109
  Transmission Date: 20170428
  Serious: Yes (Hospitalization, Other)
  Sender: FDA-Public Use
  Company Number: BR-009507513-1701BRA000993

PATIENT
  Sex: Male
  Weight: 92 kg

DRUGS (3)
  1. COZAAR [Suspect]
     Active Substance: LOSARTAN POTASSIUM
     Indication: HYPERTENSION
     Dosage: 50 MG, ONE TABLET EVERY 12 HOURS
     Route: 048
     Dates: start: 1998, end: 2005
  2. COZAAR [Suspect]
     Active Substance: LOSARTAN POTASSIUM
     Dosage: 100 MG, ONE TABLET EVERY 12 HOURS
     Route: 048
     Dates: start: 2005, end: 2013
  3. MODURETIC 5-50 [Suspect]
     Active Substance: AMILORIDE HYDROCHLORIDE\HYDROCHLOROTHIAZIDE
     Indication: HYPERTENSION
     Dosage: 25 MG, ONE TABLET EVERY 12 HOURS
     Route: 048
     Dates: start: 2005

REACTIONS (7)
  - Pancreatitis [Not Recovered/Not Resolved]
  - Cholecystitis infective [Recovered/Resolved]
  - Blood pressure inadequately controlled [Recovered/Resolved]
  - Cholelithiasis [Recovered/Resolved]
  - Diabetes mellitus [Not Recovered/Not Resolved]
  - Intracranial aneurysm [Not Recovered/Not Resolved]
  - Weight decreased [Not Recovered/Not Resolved]

NARRATIVE: CASE EVENT DATE: 2013
